FAERS Safety Report 8428604-X (Version None)
Quarter: 2012Q2

REPORT INFORMATION
  Report Type: 
  Country: None (occurrence: None)
  Receive Date: 20120606
  Receipt Date: 20120530
  Transmission Date: 20120825
  Serious: Yes (Disabling, Other)
  Sender: FDA-Public Use
  Company Number: AUR-APL-2012-02515

PATIENT
  Age: 50 Year
  Sex: Male

DRUGS (7)
  1. PLAVIX [Suspect]
     Indication: PRODUCT USED FOR UNKNOWN INDICATION
  2. MAGNESIUM OXIDE(MAGNESIUM OXIDE) [Suspect]
     Indication: PRODUCT USED FOR UNKNOWN INDICATION
  3. ASPIRIN [Suspect]
     Indication: PRODUCT USED FOR UNKNOWN INDICATION
  4. CALCIUM WITH VITAMIN D (LEKOVITCA) [Suspect]
     Indication: PRODUCT USED FOR UNKNOWN INDICATION
  5. PROTONIX [Suspect]
     Indication: PRODUCT USED FOR UNKNOWN INDICATION
     Dosage: 40 MG (40 MG, 1  IN 1 D),ORAL
     Route: 048
  6. BISOPROLOL FUMARATE [Suspect]
     Indication: PRODUCT USED FOR UNKNOWN INDICATION
  7. DOCUSATE ( DOCUSATE ) [Suspect]
     Indication: DIARRHOEA

REACTIONS (5)
  - CERVICAL VERTEBRAL FRACTURE [None]
  - VERTEBRAL ARTERY OCCLUSION [None]
  - BRAIN STEM STROKE [None]
  - FALL [None]
  - CEREBROVASCULAR ACCIDENT [None]
